FAERS Safety Report 25949253 (Version 1)
Quarter: 2025Q4

REPORT INFORMATION
  Report Type: Spontaneous
  Country: US (occurrence: None)
  Receive Date: 20251022
  Receipt Date: 20251022
  Transmission Date: 20260117
  Serious: Yes (Hospitalization)
  Sender: FDA-CTU
  Company Number: None

PATIENT
  Age: 14 Year
  Sex: Female
  Weight: 54.43 kg

DRUGS (1)
  1. COSENTYX [Suspect]
     Active Substance: SECUKINUMAB
     Indication: Psoriasis
     Dosage: FREQUENCY : MONTHLY;?INJECT LSOMG (1 PEN) SUBCUTANEOUSLY EVERY 4 WEEKS AS DIRECTED?
     Route: 058

REACTIONS (1)
  - Adenoidectomy [None]

NARRATIVE: CASE EVENT DATE: 20251020
